FAERS Safety Report 8304944-X (Version None)
Quarter: 2012Q2

REPORT INFORMATION
  Report Type: 
  Country: None (occurrence: None)
  Receive Date: 20120423
  Receipt Date: 20120417
  Transmission Date: 20120825
  Serious: Yes (Other)
  Sender: FDA-Public Use
  Company Number: US-ROCHE-1060722

PATIENT
  Age: 88 Year
  Sex: Female

DRUGS (2)
  1. CAPECITABINE [Concomitant]
     Indication: COLORECTAL CANCER METASTATIC
     Route: 048
  2. AVASTIN [Suspect]
     Indication: COLORECTAL CANCER METASTATIC
     Route: 042

REACTIONS (3)
  - INCONTINENCE [None]
  - PAIN IN EXTREMITY [None]
  - DYSPHONIA [None]
